FAERS Safety Report 25944078 (Version 2)
Quarter: 2025Q4

REPORT INFORMATION
  Report Type: Report from Study
  Country: US (occurrence: US)
  Receive Date: 20251021
  Receipt Date: 20251103
  Transmission Date: 20260117
  Serious: Yes (Other)
  Sender: ABBVIE
  Company Number: US-ABBVIE-6508076

PATIENT
  Age: 62 Year
  Sex: Male

DRUGS (1)
  1. SKYRIZI [Suspect]
     Active Substance: RISANKIZUMAB-RZAA
     Indication: Psoriasis
     Dosage: DOSAGE: 150 MG/ML FORM STRENGTH: 150MG/ML, WEEK 0
     Route: 058
     Dates: start: 20250820, end: 20250916

REACTIONS (3)
  - Cutaneous lymphoma [Unknown]
  - Papule [Unknown]
  - Rash [Unknown]

NARRATIVE: CASE EVENT DATE: 20250101
